FAERS Safety Report 8979251 (Version 3)
Quarter: 2013Q1

REPORT INFORMATION
  Report Type: Spontaneous
  Country: DE (occurrence: DE)
  Receive Date: 20121221
  Receipt Date: 20130227
  Transmission Date: 20140127
  Serious: Yes (Hospitalization, Other)
  Sender: FDA-Public Use
  Company Number: DE-JNJFOC-20121204586

PATIENT
  Age: 42 Year
  Sex: Male
  Weight: 100 kg

DRUGS (8)
  1. SEMPERA [Suspect]
     Indication: GASTROINTESTINAL FUNGAL INFECTION
     Route: 065
  2. SEMPERA [Suspect]
     Indication: FUNGAL SKIN INFECTION
     Route: 065
  3. CIPROFLOXACIN [Interacting]
     Indication: CYSTITIS
     Dosage: 2 X 500 MG
     Route: 042
  4. CIPROFLOXACIN [Interacting]
     Indication: CYSTITIS
     Dosage: 1000 MG TWICE
     Route: 042
  5. ANTIHYPERTENSIVE [Concomitant]
     Indication: BLOOD PRESSURE
     Route: 065
  6. CLONIDINE [Concomitant]
     Indication: BLOOD PRESSURE
     Route: 065
  7. LEUSTATIN [Concomitant]
     Dosage: 3X3 TABLETS
     Route: 065
  8. LEXOTANIL [Concomitant]
     Route: 065

REACTIONS (14)
  - Cystitis haemorrhagic [Recovered/Resolved]
  - Micturition urgency [Recovered/Resolved]
  - Drug interaction [Recovered/Resolved]
  - Renal pain [Recovered/Resolved]
  - Insomnia [Recovered/Resolved]
  - Restlessness [Recovered/Resolved]
  - Palpitations [Recovered/Resolved]
  - Erythema [Recovered/Resolved]
  - Tremor [Recovered/Resolved]
  - Chills [Recovered/Resolved]
  - Flatulence [Recovered/Resolved]
  - Eructation [Recovered/Resolved]
  - Diarrhoea [Recovered/Resolved]
  - Pruritus [Recovered/Resolved]
